FAERS Safety Report 5130544-9 (Version None)
Quarter: 2006Q4

REPORT INFORMATION
  Report Type: 
  Country: None (occurrence: None)
  Receive Date: 20061017
  Receipt Date: 20061017
  Transmission Date: 20070319
  Serious: No
  Sender: FDA-Public Use
  Company Number: None

PATIENT
  Age: 84 Year
  Sex: Male

DRUGS (1)
  1. TEQUIN [Suspect]
     Indication: PNEUMONIA
     Dosage: 400 MG ONCE DAILY IV DRIP
     Route: 041
     Dates: start: 20060101, end: 20060106

REACTIONS (1)
  - HYPERGLYCAEMIA [None]
